FAERS Safety Report 9144681 (Version 3)
Quarter: 2013Q3

REPORT INFORMATION
  Report Type: Spontaneous
  Country: US (occurrence: US)
  Receive Date: 20130306
  Receipt Date: 20130709
  Transmission Date: 20140515
  Serious: Yes (Hospitalization, Other)
  Sender: FDA-Public Use
  Company Number: US-PFIZER INC-2013073046

PATIENT
  Age: 55 Year
  Sex: Male
  Weight: 50.3 kg

DRUGS (1)
  1. BENEFIX [Suspect]
     Indication: FACTOR IX DEFICIENCY
     Dosage: 10 IU/KG (ON DEMAND USE)

REACTIONS (2)
  - Disease complication [Unknown]
  - Haemorrhage [Unknown]
